FAERS Safety Report 9617520 (Version 1)
Quarter: 2013Q4

REPORT INFORMATION
  Report Type: Spontaneous
  Country: JP (occurrence: JP)
  Receive Date: 20131011
  Receipt Date: 20131011
  Transmission Date: 20140711
  Serious: Yes (Hospitalization)
  Sender: FDA-Public Use
  Company Number: JP-GLAXOSMITHKLINE-B0922295A

PATIENT
  Sex: Female

DRUGS (4)
  1. LAMICTAL [Suspect]
     Indication: EPILEPSY
     Dosage: 150MG TWICE PER DAY
     Route: 048
     Dates: end: 20130830
  2. SELENICA-R [Suspect]
     Indication: EPILEPSY
     Dosage: .75G TWICE PER DAY
     Route: 048
     Dates: end: 20130917
  3. TOPINA [Suspect]
     Indication: EPILEPSY
     Dosage: 200MG TWICE PER DAY
     Route: 048
  4. TEGRETOL [Suspect]
     Indication: EPILEPSY
     Dosage: 1.2G TWICE PER DAY
     Route: 048
     Dates: end: 20130917

REACTIONS (15)
  - Stevens-Johnson syndrome [Recovering/Resolving]
  - Ocular hyperaemia [Unknown]
  - Erythema of eyelid [Unknown]
  - Eye discharge [Unknown]
  - Lip erosion [Unknown]
  - Oral mucosa erosion [Unknown]
  - Scab [Unknown]
  - Vulval disorder [Unknown]
  - Erythema [Unknown]
  - Blister [Unknown]
  - Blister [Unknown]
  - Anal erosion [Unknown]
  - Pyrexia [Unknown]
  - Mucosal necrosis [Unknown]
  - Overdose [Unknown]
